FAERS Safety Report 9113207 (Version 2)
Quarter: 2015Q2

REPORT INFORMATION
  Report Type: Report from Study
  Country: GB (occurrence: GB)
  Receive Date: 20130211
  Receipt Date: 20150514
  Transmission Date: 20150821
  Serious: Yes (Death, Hospitalization)
  Sender: FDA-Public Use
  Company Number: GB-ROCHE-1187943

PATIENT
  Age: 74 Year
  Sex: Male

DRUGS (4)
  1. BEVACIZUMAB [Suspect]
     Active Substance: BEVACIZUMAB
     Indication: GASTRIC CANCER
     Dosage: DATE OF MOST RECENT ADMINISTRATION 18/JAN/2013, MOST RECENT DOSE GIVEN 546 MG
     Route: 042
     Dates: start: 20121228
  2. EPIRUBICIN [Suspect]
     Active Substance: EPIRUBICIN
     Indication: GASTRIC CANCER
     Dosage: DATE OF MOST RECENT ADMINISTRATION 18/JAN/2013, MOST RECENT DOSE GIVEN 92 MG
     Route: 042
     Dates: start: 20121228
  3. CAPECITABINE. [Suspect]
     Active Substance: CAPECITABINE
     Indication: GASTRIC CANCER
     Dosage: MOST RECENT DOSE GIVEN 2500MG
     Route: 048
     Dates: start: 20121228
  4. CISPLATIN. [Suspect]
     Active Substance: CISPLATIN
     Indication: GASTRIC CANCER
     Dosage: DATE OF MOST RECENT ADMINISTRATION 18/JAN/2013, MOST RECENT DOSE GIVEN 110 MG
     Route: 042
     Dates: start: 20121228

REACTIONS (1)
  - Multi-organ failure [Fatal]

NARRATIVE: CASE EVENT DATE: 20130125
